FAERS Safety Report 6348170-2 (Version None)
Quarter: 2009Q3

REPORT INFORMATION
  Report Type: 
  Country: None (occurrence: None)
  Receive Date: 20090910
  Receipt Date: 20090831
  Transmission Date: 20100115
  Serious: Yes (Hospitalization, Disabling)
  Sender: FDA-Public Use
  Company Number: US-GILEAD-2009-0024010

PATIENT
  Sex: Female
  Weight: 13 kg

DRUGS (17)
  1. VISTIDE [Suspect]
     Indication: HERPES VIRUS INFECTION
     Dates: start: 20090801
  2. ACYCLOVIR [Concomitant]
     Indication: HERPES SIMPLEX
     Dates: start: 20090716, end: 20090801
  3. CLINDAMYCIN [Concomitant]
     Indication: STAPHYLOCOCCAL INFECTION
  4. ERGOCALCIFEROL [Concomitant]
     Indication: VITAMIN SUPPLEMENTATION
  5. ERYTHROMYCIN [Concomitant]
     Indication: PROPHYLAXIS
  6. FERROUS SULFATE TAB [Concomitant]
     Indication: ANAEMIA
  7. PREDNISOLONE ACETATE [Concomitant]
  8. SELENIUM [Concomitant]
     Indication: SELENIUM DEFICIENCY
  9. TRIFLURIDINE [Concomitant]
     Indication: SKIN LESION
  10. ZINC SULFATE [Concomitant]
     Indication: ZINC DEFICIENCY
  11. TRIAMCINOLONE ACETATE [Concomitant]
  12. VORICONAZOLE [Concomitant]
     Indication: LUNG NEOPLASM
  13. CIPRODEX [Concomitant]
     Indication: EAR INFECTION
  14. VORICONAZOLE [Concomitant]
  15. PROBENECID [Concomitant]
  16. GANCICLOVIR [Concomitant]
     Indication: HERPES SIMPLEX
  17. VALACYCLOVIR [Concomitant]
     Indication: HERPES SIMPLEX

REACTIONS (4)
  - ABNORMAL BEHAVIOUR [None]
  - HEMIPARESIS [None]
  - SLEEP DISORDER [None]
  - SOMNOLENCE [None]
